FAERS Safety Report 6834314-2 (Version None)
Quarter: 2010Q3

REPORT INFORMATION
  Report Type: 
  Country: None (occurrence: None)
  Receive Date: 20100712
  Receipt Date: 20070412
  Transmission Date: 20110219
  Serious: No
  Sender: FDA-Public Use
  Company Number: US-PFIZER INC-2007030275

PATIENT
  Sex: Male
  Weight: 72.57 kg

DRUGS (8)
  1. CHANTIX [Suspect]
     Indication: SMOKING CESSATION THERAPY
     Dates: start: 20070301
  2. ZETIA [Concomitant]
     Indication: BLOOD CHOLESTEROL INCREASED
  3. NIASPAN [Concomitant]
     Indication: BLOOD CHOLESTEROL INCREASED
  4. PROTONIX [Concomitant]
     Indication: GASTROOESOPHAGEAL REFLUX DISEASE
  5. BELLADONNA AND DERIVATIVES [Concomitant]
     Indication: IRRITABLE BOWEL SYNDROME
  6. AMBIEN [Concomitant]
     Indication: SLEEP DISORDER
  7. ATIVAN [Concomitant]
     Indication: AGITATION
  8. ACETYLSALICYLIC ACID [Concomitant]

REACTIONS (2)
  - NAUSEA [None]
  - TINNITUS [None]
